FAERS Safety Report 11597055 (Version 5)
Quarter: 2015Q4

REPORT INFORMATION
  Report Type: Report from Study
  Country: DE (occurrence: DE)
  Receive Date: 20151006
  Receipt Date: 20151111
  Transmission Date: 20160304
  Serious: Yes (Death, Hospitalization)
  Sender: FDA-Public Use
  Company Number: PHHY2015DE119068

PATIENT
  Sex: Female
  Weight: 61.5 kg

DRUGS (10)
  1. ZOPICLONE [Concomitant]
     Active Substance: ZOPICLONE
     Indication: PRODUCT USED FOR UNKNOWN INDICATION
     Dosage: 7.5 MG, (0-0-?  -0)
     Route: 048
     Dates: start: 2014
  2. EXEMESTANE. [Concomitant]
     Active Substance: EXEMESTANE
     Indication: BREAST CANCER METASTATIC
     Dosage: 25 MG, DAILY (QD)
     Route: 048
     Dates: start: 20150911
  3. AFINITOR [Suspect]
     Active Substance: EVEROLIMUS
     Dosage: 5 MG, DAILY (QD)
     Route: 048
     Dates: start: 20150919, end: 20150919
  4. AFINITOR [Suspect]
     Active Substance: EVEROLIMUS
     Indication: BREAST CANCER METASTATIC
     Dosage: 2.5 MG, DAILY (QD)
     Route: 048
     Dates: start: 20150911, end: 20150918
  5. CALCIUM +D3 [Concomitant]
     Active Substance: CALCIUM\CHOLECALCIFEROL
     Indication: PRODUCT USED FOR UNKNOWN INDICATION
     Dosage: QD (0-1-0-0)
     Route: 065
     Dates: start: 2014
  6. AFINITOR [Suspect]
     Active Substance: EVEROLIMUS
     Dosage: 2.5 MG, DAILY (QD)
     Route: 048
     Dates: start: 20150920, end: 20150926
  7. NOVAMINSULFON [Concomitant]
     Active Substance: METAMIZOLE
     Indication: PRODUCT USED FOR UNKNOWN INDICATION
     Dosage: 500 MG, TID (1-1-1-0)
     Route: 048
     Dates: start: 2014
  8. MIRTAZAPIN [Concomitant]
     Active Substance: MIRTAZAPINE
     Indication: PRODUCT USED FOR UNKNOWN INDICATION
     Dosage: 30 MG, (0-0-1? -0)
     Route: 048
     Dates: start: 2014
  9. VIGANTOLETTEN [Concomitant]
     Active Substance: CHOLECALCIFEROL
     Indication: PRODUCT USED FOR UNKNOWN INDICATION
     Dosage: 1000 IU, QD (0-1-0-0)
     Route: 065
     Dates: start: 2014
  10. HYDROMORPHONE [Concomitant]
     Active Substance: HYDROMORPHONE
     Indication: PRODUCT USED FOR UNKNOWN INDICATION
     Dosage: 16 MG, BID (1-0-1-0)
     Route: 065
     Dates: start: 2014

REACTIONS (8)
  - Ascites [Fatal]
  - Metastases to liver [Fatal]
  - C-reactive protein increased [Fatal]
  - Metastases to bone [Fatal]
  - Blood creatinine increased [Fatal]
  - Haemoglobin decreased [Fatal]
  - Weight decreased [Unknown]
  - General physical health deterioration [Fatal]

NARRATIVE: CASE EVENT DATE: 201509
